FAERS Safety Report 7024164-9 (Version None)
Quarter: 2010Q4

REPORT INFORMATION
  Report Type: 
  Country: None (occurrence: None)
  Receive Date: 20101001
  Receipt Date: 20100920
  Transmission Date: 20110411
  Serious: Yes (Hospitalization, Other)
  Sender: FDA-Public Use
  Company Number: CA-JNJFOC-20100906982

PATIENT
  Sex: Male

DRUGS (3)
  1. REMICADE [Suspect]
     Indication: CROHN'S DISEASE
     Route: 042
  2. BETA BLOCKERS, NOS [Concomitant]
  3. SOLU-CORTEF [Concomitant]

REACTIONS (2)
  - HAEMATEMESIS [None]
  - HAEMOPTYSIS [None]
